FAERS Safety Report 6955602-5 (Version None)
Quarter: 2010Q3

REPORT INFORMATION
  Report Type: 
  Country: None (occurrence: None)
  Receive Date: 20100826
  Receipt Date: 20100826
  Transmission Date: 20110219
  Serious: Yes (Hospitalization)
  Sender: FDA-Public Use
  Company Number: None

PATIENT
  Age: 53 Year
  Sex: Female

DRUGS (3)
  1. TRILEPTAL [Suspect]
     Indication: BIPOLAR DISORDER
     Dosage: TWO TABS BID PO
     Route: 048
     Dates: start: 20100622, end: 20100705
  2. SEROQUEL XR [Concomitant]
  3. VYVANSE [Suspect]

REACTIONS (1)
  - HYPONATRAEMIA [None]
